FAERS Safety Report 15950960 (Version 2)
Quarter: 2019Q2

REPORT INFORMATION
  Report Type: Spontaneous
  Country: US (occurrence: US)
  Receive Date: 20190212
  Receipt Date: 20190624
  Transmission Date: 20190711
  Serious: Yes (Hospitalization)
  Sender: FDA-Public Use
  Company Number: US-ACTELION-A-NJ2019-186121

PATIENT
  Sex: Male

DRUGS (18)
  1. IPRATROPIUM W/SALBUTAMOL [Concomitant]
  2. LEVOTHYROXINE SODIUM. [Concomitant]
     Active Substance: LEVOTHYROXINE SODIUM
  3. TRACLEER [Suspect]
     Active Substance: BOSENTAN
     Indication: PULMONARY HYPERTENSION
     Dosage: 125 MG, UNK
     Route: 048
  4. GABAPENTIN. [Concomitant]
     Active Substance: GABAPENTIN
  5. HYDROCODONE BITARTRATE AND ACETAMINOPHEN [Concomitant]
     Active Substance: ACETAMINOPHEN\HYDROCODONE BITARTRATE
  6. NYSTATIN. [Concomitant]
     Active Substance: NYSTATIN
  7. RIFAMPIN. [Concomitant]
     Active Substance: RIFAMPIN
  8. BACLOFEN. [Concomitant]
     Active Substance: BACLOFEN
  9. XARELTO [Concomitant]
     Active Substance: RIVAROXABAN
  10. AMIODARONE HCL [Concomitant]
     Active Substance: AMIODARONE HYDROCHLORIDE
  11. FUROSEMIDE. [Concomitant]
     Active Substance: FUROSEMIDE
  12. SEROQUEL [Concomitant]
     Active Substance: QUETIAPINE FUMARATE
  13. VENTOLIN HFA [Concomitant]
     Active Substance: ALBUTEROL SULFATE
  14. MELOXICAM. [Concomitant]
     Active Substance: MELOXICAM
  15. METHOCARBAMOL. [Concomitant]
     Active Substance: METHOCARBAMOL
  16. MORPHINE SULFATE. [Concomitant]
     Active Substance: MORPHINE SULFATE
  17. SILDENAFIL CITRATE. [Concomitant]
     Active Substance: SILDENAFIL CITRATE
  18. TYLENOL [Concomitant]
     Active Substance: ACETAMINOPHEN

REACTIONS (3)
  - Cardiac disorder [Recovering/Resolving]
  - Product dose omission [Unknown]
  - Chest discomfort [Unknown]
